FAERS Safety Report 6903102-0 (Version None)
Quarter: 2010Q3

REPORT INFORMATION
  Report Type: 
  Country: None (occurrence: None)
  Receive Date: 20100803
  Receipt Date: 20080625
  Transmission Date: 20110219
  Serious: No
  Sender: FDA-Public Use
  Company Number: US-PFIZER INC-2008039079

PATIENT
  Sex: Female
  Weight: 72.7 kg

DRUGS (11)
  1. LYRICA [Suspect]
     Indication: PAIN
     Route: 048
     Dates: start: 20080331
  2. LYRICA [Suspect]
     Indication: FIBROMYALGIA
  3. NEURONTIN [Suspect]
  4. ACETYLSALICYLIC ACID SRT [Concomitant]
  5. METFORMIN HCL [Concomitant]
  6. CLONAZEPAM [Concomitant]
     Indication: RESTLESS LEGS SYNDROME
  7. HYDROCODONE BITARTRATE [Concomitant]
  8. KLONOPIN [Concomitant]
  9. ALDACTONE [Concomitant]
  10. LOVAZA [Concomitant]
  11. POLYETHYLENE GLYCOL [Concomitant]

REACTIONS (10)
  - ANXIETY [None]
  - BALANCE DISORDER [None]
  - BLOOD GLUCOSE INCREASED [None]
  - DISTURBANCE IN ATTENTION [None]
  - DIZZINESS [None]
  - DRUG INEFFECTIVE [None]
  - FATIGUE [None]
  - OEDEMA PERIPHERAL [None]
  - VISION BLURRED [None]
  - WEIGHT INCREASED [None]
